FAERS Safety Report 6992988-X (Version None)
Quarter: 2010Q3

REPORT INFORMATION
  Report Type: 
  Country: None (occurrence: None)
  Receive Date: 20100917
  Receipt Date: 20100907
  Transmission Date: 20110219
  Serious: Yes (Other)
  Sender: FDA-Public Use
  Company Number: US-BRISTOL-MYERS SQUIBB COMPANY-15275225

PATIENT
  Age: 4 Decade
  Sex: Female

DRUGS (7)
  1. KENALOG-10 [Suspect]
     Dosage: 3RD INJECTION:JUN10.
     Dates: end: 20100830
  2. OXYCONTIN [Concomitant]
  3. AMBIEN [Concomitant]
  4. KLONOPIN [Concomitant]
  5. LIDODERM [Concomitant]
  6. CALCIUM + VITAMIN D [Concomitant]
  7. VITAMIN B-12 [Concomitant]

REACTIONS (22)
  - AMNESIA [None]
  - BLOOD GLUCOSE INCREASED [None]
  - DYSPHONIA [None]
  - DYSTONIA [None]
  - FEELING ABNORMAL [None]
  - HYPERTENSION [None]
  - INSOMNIA [None]
  - KIDNEY INFECTION [None]
  - MOOD SWINGS [None]
  - MUSCLE TWITCHING [None]
  - MUSCULAR WEAKNESS [None]
  - MUSCULOSKELETAL PAIN [None]
  - NEPHROLITHIASIS [None]
  - OCULAR HYPERAEMIA [None]
  - PALPITATIONS [None]
  - PRURITUS [None]
  - ROTATOR CUFF SYNDROME [None]
  - THINKING ABNORMAL [None]
  - VASODILATATION [None]
  - VISUAL IMPAIRMENT [None]
  - VOMITING [None]
  - WEIGHT DECREASED [None]
